FAERS Safety Report 9261599 (Version 3)
Quarter: 2013Q3

REPORT INFORMATION
  Report Type: Spontaneous
  Country: NO (occurrence: NO)
  Receive Date: 20130429
  Receipt Date: 20130912
  Transmission Date: 20140515
  Serious: Yes (Other)
  Sender: FDA-Public Use
  Company Number: NO-PFIZER INC-2013129312

PATIENT
  Age: 14 Year
  Sex: Female

DRUGS (1)
  1. MEDROL [Suspect]
     Indication: BRAIN OEDEMA
     Dosage: 2 MG, ALTERNATE DAY (THE LAST MONTH)
     Dates: start: 201211, end: 201303

REACTIONS (1)
  - Adrenal insufficiency [Not Recovered/Not Resolved]
